FAERS Safety Report 5370488-0 (Version None)
Quarter: 2007Q2

REPORT INFORMATION
  Report Type: 
  Country: None (occurrence: None)
  Receive Date: 20070625
  Receipt Date: 20070625
  Transmission Date: 20071010
  Serious: No
  Sender: FDA-Public Use
  Company Number: None

PATIENT
  Age: 45 Year
  Weight: 63.9572 kg

DRUGS (8)
  1. MORPHINE SULFATE [Suspect]
     Dosage: POST OP PAIN
     Route: 042
     Dates: start: 20070104, end: 20070104
  2. IV D5 LR [Concomitant]
  3. PERCOCET [Concomitant]
  4. COMPAZINE [Concomitant]
  5. MAG HYDROXIDE [Concomitant]
  6. NAPROSYN [Concomitant]
  7. MYLICON CHEW [Concomitant]
  8. ALBUTEROL SUL [Concomitant]

REACTIONS (1)
  - RASH [None]
